FAERS Safety Report 7659831-7 (Version None)
Quarter: 2011Q3

REPORT INFORMATION
  Report Type: 
  Country: None (occurrence: None)
  Receive Date: 20110805
  Receipt Date: 20110726
  Transmission Date: 20111222
  Serious: Yes (Death, Hospitalization)
  Sender: FDA-Public Use
  Company Number: FR-TEVA-294356ISR

PATIENT
  Sex: Male

DRUGS (14)
  1. DIGOXIN [Suspect]
     Indication: CARDIAC FAILURE
  2. VENTOLIN [Suspect]
     Indication: CHRONIC OBSTRUCTIVE PULMONARY DISEASE
     Dosage: LONG TEARM TREATMENT
  3. XANAX [Suspect]
     Dosage: .5 MILLIGRAM;
     Route: 048
     Dates: start: 20110115
  4. PANTOPRAZOLE SODIUM [Suspect]
     Indication: ULCER
     Dosage: 80 MILLIGRAM; -11-2010
  5. KETOPROFEN [Suspect]
     Dosage: 100 MILLIGRAM;
     Route: 048
     Dates: start: 20110115
  6. ALLOPURINOL [Suspect]
     Indication: GOUT
     Dosage: 100 MILLIGRAM; LONG TEARM TREATMENT
     Route: 048
  7. CORDARONE [Suspect]
     Indication: CARDIAC FAILURE
  8. DIGOXIN [Suspect]
     Indication: ATRIAL FIBRILLATION
     Dosage: .125 MILLIGRAM; LONG TEARM TREATMENT
     Route: 048
     Dates: start: 20110105
  9. ATROVENT [Suspect]
     Indication: CHRONIC OBSTRUCTIVE PULMONARY DISEASE
     Dosage: LONG-TERM TREATMENT
  10. ARIXTRA [Suspect]
     Indication: ATRIAL FIBRILLATION
     Dosage: 7.5 MILLIGRAM; 7.5 MG/0.6 ML
     Route: 058
     Dates: start: 20101101
  11. FERROUS SULFATE TAB [Suspect]
     Indication: ANAEMIA
     Dosage: 160 MILLIGRAM;
     Route: 048
     Dates: start: 20101101
  12. COLCHICINE [Suspect]
     Dosage: 1 DOSAGE FORMS;
     Route: 048
     Dates: start: 20110115
  13. CORDARONE [Suspect]
     Indication: ATRIAL FIBRILLATION
     Dosage: 200 MILLIGRAM;
     Route: 048
     Dates: start: 20101101
  14. ACETAMINOPHEN [Suspect]
     Route: 048
     Dates: start: 20110115

REACTIONS (9)
  - CARDIAC ARREST [None]
  - MYOCARDIAL INFARCTION [None]
  - ATRIAL FIBRILLATION [None]
  - RETROPERITONEAL HAEMORRHAGE [None]
  - GASTRIC ULCER [None]
  - PERICARDIAL EFFUSION [None]
  - BACK PAIN [None]
  - RENAL CELL CARCINOMA [None]
  - ARRHYTHMIA [None]
